FAERS Safety Report 7798329-2 (Version None)
Quarter: 2011Q4

REPORT INFORMATION
  Report Type: 
  Country: None (occurrence: None)
  Receive Date: 20111005
  Receipt Date: 20110927
  Transmission Date: 20120403
  Serious: Yes (Hospitalization, Other)
  Sender: FDA-Public Use
  Company Number: US-ELI_LILLY_AND_COMPANY-US201109005631

PATIENT
  Sex: Female

DRUGS (5)
  1. BYETTA [Suspect]
     Dosage: 5 UG, BID
     Route: 058
     Dates: start: 20110301, end: 20110401
  2. PRANDIN [Concomitant]
     Dosage: UNK
  3. BYETTA [Suspect]
     Dosage: 10 UG, BID
     Dates: start: 20110401
  4. GLUMETZA [Concomitant]
     Dosage: UNK
  5. CRESTOR [Concomitant]
     Dosage: UNK

REACTIONS (5)
  - PROCEDURAL VOMITING [None]
  - TUMOUR INVASION [None]
  - PHAEOCHROMOCYTOMA [None]
  - THYROID CANCER [None]
  - NAUSEA [None]
